FAERS Safety Report 9339466 (Version 1)
Quarter: 2013Q2

REPORT INFORMATION
  Report Type: Spontaneous
  Country: US (occurrence: None)
  Receive Date: 20130605
  Receipt Date: 20130605
  Transmission Date: 20140414
  Serious: Yes (Death, Life-Threatening)
  Sender: FDA-Public Use
  Company Number: FK201301869

PATIENT
  Sex: Male

DRUGS (3)
  1. MORPHINE (MANUFACTURER UNKNOWN) (MORPHINE) (MORPHINE) [Suspect]
     Indication: POSTOPERATIVE ANALGESIA
     Route: 042
  2. MEPERIDINE [Concomitant]
  3. FENTANYL (FENTANYL) [Concomitant]

REACTIONS (3)
  - Drug prescribing error [None]
  - Accidental overdose [None]
  - Respiratory arrest [None]
